FAERS Safety Report 10646909 (Version 1)
Quarter: 2014Q4

REPORT INFORMATION
  Report Type: Spontaneous
  Country: US (occurrence: US)
  Receive Date: 20141211
  Receipt Date: 20141211
  Transmission Date: 20150529
  Serious: Yes (Other)
  Sender: FDA-Public Use
  Company Number: 2014SP003884

PATIENT
  Age: 49 Year
  Sex: Female

DRUGS (4)
  1. VITAMIN D3 [Concomitant]
     Active Substance: CHOLECALCIFEROL
  2. LATUDA [Suspect]
     Active Substance: LURASIDONE HYDROCHLORIDE
     Indication: SCHIZOAFFECTIVE DISORDER
     Route: 048
     Dates: start: 20140903
  3. VISTARIL [Concomitant]
     Active Substance: HYDROXYZINE PAMOATE
  4. CLONAPIN [Concomitant]
     Active Substance: CLONAZEPAM

REACTIONS (4)
  - Urticaria [Unknown]
  - Dysphagia [Unknown]
  - Pharyngeal oedema [Unknown]
  - Burning sensation [Unknown]

NARRATIVE: CASE EVENT DATE: 20141127
